FAERS Safety Report 5872662-3 (Version None)
Quarter: 2008Q3

REPORT INFORMATION
  Report Type: 
  Country: None (occurrence: None)
  Receive Date: 20080905
  Receipt Date: 20080827
  Transmission Date: 20090109
  Serious: Yes (Other)
  Sender: FDA-Public Use
  Company Number: JP-ALLERGAN-0809306US

PATIENT
  Sex: Female

DRUGS (2)
  1. ALESION TABLET [Suspect]
     Indication: ASTHMA
     Dosage: 20 MG, QD
     Route: 048
     Dates: start: 20080520, end: 20080625
  2. BAKUMONDOUTO [Suspect]
     Indication: ASTHMA
     Dosage: 9 G, QD
     Route: 048
     Dates: start: 20080520, end: 20080625

REACTIONS (1)
  - PLATELET COUNT DECREASED [None]
